FAERS Safety Report 4611462-9 (Version None)
Quarter: 2005Q1

REPORT INFORMATION
  Report Type: 
  Country: None (occurrence: None)
  Receive Date: 20050311
  Receipt Date: 20041116
  Transmission Date: 20050727
  Serious: No
  Sender: FDA-Public Use
  Company Number: 2004-BP-11988BP

PATIENT
  Age: 69 Year
  Sex: Male

DRUGS (9)
  1. SPIRIVA [Suspect]
     Indication: CHRONIC OBSTRUCTIVE PULMONARY DISEASE
     Dosage: 18 MCG (18 MCG, 18 MCG ONCE DAILY), IH
     Route: 055
     Dates: start: 20040725
  2. NEXIUM [Concomitant]
  3. ANDROGEL [Concomitant]
  4. ANALPRAM [Concomitant]
  5. ANUSOL (ANUSOL [Concomitant]
  6. CITRACEL, SUGAR FREE [Concomitant]
  7. MULTIVITAMIN [Concomitant]
  8. CLOTRIMAZOLE [Concomitant]
  9. NASONEX [Concomitant]

REACTIONS (8)
  - DRY MOUTH [None]
  - GLOSSITIS [None]
  - LOCALISED OEDEMA [None]
  - ORAL CANDIDIASIS [None]
  - PHARYNGEAL ERYTHEMA [None]
  - THROAT IRRITATION [None]
  - TONGUE COATED [None]
  - TONGUE DISCOLOURATION [None]
